FAERS Safety Report 8048144-X (Version None)
Quarter: 2011Q4

REPORT INFORMATION
  Report Type: 
  Country: None (occurrence: None)
  Receive Date: 20111209
  Receipt Date: 20111024
  Transmission Date: 20120403
  Serious: No
  Sender: FDA-Public Use
  Company Number: 2011SP050379

PATIENT
  Sex: Female

DRUGS (3)
  1. VICTRELIS [Suspect]
     Indication: PRODUCT USED FOR UNKNOWN INDICATION
     Dates: start: 20110905
  2. PEGINTERON [Suspect]
     Indication: PRODUCT USED FOR UNKNOWN INDICATION
  3. RIBAVIRIN (200 MD) [Suspect]
     Indication: PRODUCT USED FOR UNKNOWN INDICATION

REACTIONS (5)
  - DRUG DOSE OMISSION [None]
  - VOMITING [None]
  - INFLUENZA [None]
  - NAUSEA [None]
  - GASTRIC DISORDER [None]
